FAERS Safety Report 25350372 (Version 1)
Quarter: 2025Q2

REPORT INFORMATION
  Report Type: Spontaneous
  Country: CN (occurrence: CN)
  Receive Date: 20250523
  Receipt Date: 20250523
  Transmission Date: 20250716
  Serious: Yes (Hospitalization, Other)
  Sender: BAXTER
  Company Number: None

PATIENT
  Age: 40 Year
  Sex: Female
  Weight: 60 kg

DRUGS (4)
  1. CYCLOPHOSPHAMIDE [Suspect]
     Active Substance: CYCLOPHOSPHAMIDE
     Indication: Breast cancer female
     Dosage: 1000 MG, QD, CYCLOPHOSPHAMIDE INJECTION (IMPORTED) ALONG WITH NACL
     Route: 041
     Dates: start: 20250415, end: 20250415
  2. SODIUM CHLORIDE [Suspect]
     Active Substance: SODIUM CHLORIDE
     Dosage: 250 ML, QD, 0.9% NACL ALONG WITH EPIRUBICIN
     Route: 041
     Dates: start: 20250415, end: 20250415
  3. SODIUM CHLORIDE [Suspect]
     Active Substance: SODIUM CHLORIDE
     Dosage: 250 ML, QD, 0.9% NACL ALONG WITH CYCLOPHOSPHAMIDE
     Route: 041
     Dates: start: 20250415, end: 20250415
  4. EPIRUBICIN [Suspect]
     Active Substance: EPIRUBICIN
     Indication: Breast cancer female
     Dosage: 160 MG, QD,  EPIRUBICIN (IMPORTED) ALONG WITH NACL
     Route: 041
     Dates: start: 20250415, end: 20250415

REACTIONS (2)
  - Transaminases increased [Recovering/Resolving]
  - Liver injury [Unknown]

NARRATIVE: CASE EVENT DATE: 20250419
